FAERS Safety Report 8074566-7 (Version None)
Quarter: 2012Q1

REPORT INFORMATION
  Report Type: 
  Country: None (occurrence: None)
  Receive Date: 20120126
  Receipt Date: 20120124
  Transmission Date: 20120608
  Serious: Yes (Hospitalization)
  Sender: FDA-Public Use
  Company Number: CA-AMGEN-CANCT2012002497

PATIENT
  Age: 64 Year
  Sex: Male

DRUGS (6)
  1. ADVAIR DISKUS 100/50 [Suspect]
  2. ENBREL [Suspect]
     Indication: RHEUMATOID ARTHRITIS
     Dosage: 50 MG, QWK
     Route: 058
     Dates: start: 20100708, end: 20120111
  3. METHOTREXATE [Suspect]
     Indication: RHEUMATOID ARTHRITIS
     Dosage: 20 MG, QWK
     Route: 058
     Dates: start: 20090930, end: 20120111
  4. VENTOLIN [Suspect]
  5. PREDNISONE TAB [Suspect]
     Dosage: 40 MG, QD
     Route: 048
  6. SPIRIVA [Suspect]

REACTIONS (3)
  - EMPYEMA [None]
  - LUNG ABSCESS [None]
  - PNEUMONIA [None]
